FAERS Safety Report 9165558 (Version 1)
Quarter: 2013Q1

REPORT INFORMATION
  Report Type: Spontaneous
  Country: US (occurrence: US)
  Receive Date: 20130315
  Receipt Date: 20130315
  Transmission Date: 20140127
  Serious: No
  Sender: FDA-Public Use
  Company Number: US-BAYER-2013-032500

PATIENT
  Age: 77 Year
  Sex: Female
  Weight: 65 kg

DRUGS (5)
  1. ALEVE [Suspect]
     Indication: ARTHRITIS
     Dosage: 2 DF, BID
     Route: 048
     Dates: start: 20130225
  2. BLOOD PRESSURE MEDICATION [Concomitant]
  3. VITAMIN D [COLECALCIFEROL] [Concomitant]
  4. GLUSAMINE SULFATE [Concomitant]
  5. PRILOSEC [Concomitant]

REACTIONS (1)
  - Overdose [None]
